FAERS Safety Report 7504830-9 (Version None)
Quarter: 2011Q2

REPORT INFORMATION
  Report Type: 
  Country: None (occurrence: None)
  Receive Date: 20110525
  Receipt Date: 20110518
  Transmission Date: 20111010
  Serious: Yes (Hospitalization, Other)
  Sender: FDA-Public Use
  Company Number: US-RB-021365-09

PATIENT
  Age: 54 Year
  Sex: Female

DRUGS (10)
  1. SUBOXONE [Suspect]
     Route: 060
     Dates: end: 20091001
  2. PERCOCET [Suspect]
     Indication: PRODUCT USED FOR UNKNOWN INDICATION
     Dosage: DOSING INFORMATION UNKNOWN
     Route: 065
  3. WELLBUTRIN [Concomitant]
     Indication: PRODUCT USED FOR UNKNOWN INDICATION
     Dosage: DOSING DETAILS UNKNOWN
     Route: 065
  4. SUBOXONE [Suspect]
     Indication: DRUG DEPENDENCE
     Route: 065
     Dates: start: 20081101
  5. HYDROCODONE BITARTRATE [Suspect]
     Indication: PRODUCT USED FOR UNKNOWN INDICATION
     Dosage: DOSING INFORMATION UNKNOWN
     Route: 065
  6. DILAUDID [Suspect]
     Indication: PRODUCT USED FOR UNKNOWN INDICATION
     Dosage: DOSING INFORMATION UNKNOWN
     Route: 065
  7. ANTIHYPERTENSIVE [Concomitant]
     Indication: HYPERTENSION
     Dosage: DOSING DETAILS UNKNOWN
     Route: 065
  8. SUBOXONE [Suspect]
     Indication: PAIN
     Route: 060
     Dates: start: 20091001, end: 20100101
  9. XANAX [Suspect]
     Indication: ANXIETY
     Route: 065
     Dates: start: 19890101, end: 20091101
  10. PROZAC [Concomitant]
     Indication: PRODUCT USED FOR UNKNOWN INDICATION
     Dosage: DOSING DETAILS UNKNOWN
     Route: 065

REACTIONS (33)
  - ARTHRALGIA [None]
  - ABDOMINAL PAIN [None]
  - HOMICIDAL IDEATION [None]
  - WITHDRAWAL SYNDROME [None]
  - FEELING ABNORMAL [None]
  - HALLUCINATION, AUDITORY [None]
  - ANXIETY [None]
  - DRUG DEPENDENCE [None]
  - BACK PAIN [None]
  - FALL [None]
  - LIMB INJURY [None]
  - RENAL IMPAIRMENT [None]
  - HEAD INJURY [None]
  - TINNITUS [None]
  - PALPITATIONS [None]
  - INTENTIONAL OVERDOSE [None]
  - HEPATIC FUNCTION ABNORMAL [None]
  - PAIN [None]
  - VOMITING [None]
  - JAUNDICE [None]
  - PARANOIA [None]
  - DYSPNOEA [None]
  - NAUSEA [None]
  - SUICIDAL IDEATION [None]
  - HALLUCINATION, VISUAL [None]
  - MIOSIS [None]
  - INSOMNIA [None]
  - SPINAL COLUMN INJURY [None]
  - DIZZINESS [None]
  - PAIN IN EXTREMITY [None]
  - HYPERTENSION [None]
  - INCORRECT ROUTE OF DRUG ADMINISTRATION [None]
  - CARDIAC FAILURE [None]
